FAERS Safety Report 19645692 (Version 2)
Quarter: 2021Q3

REPORT INFORMATION
  Report Type: Other
  Country: AU (occurrence: AU)
  Receive Date: 20210802
  Receipt Date: 20210907
  Transmission Date: 20211014
  Serious: Yes (Death, Hospitalization, Other)
  Sender: FDA-Public Use
  Company Number: AU-ROCHE-2632412

PATIENT
  Age: 68 Year
  Sex: Female

DRUGS (9)
  1. ESOMEPRAZOLE. [Concomitant]
     Active Substance: ESOMEPRAZOLE MAGNESIUM
     Indication: GASTROOESOPHAGEAL REFLUX DISEASE
     Route: 048
     Dates: start: 2012
  2. ATORVASTATIN [Concomitant]
     Active Substance: ATORVASTATIN
     Indication: DYSLIPIDAEMIA
     Dosage: IN NIGHT
     Route: 048
     Dates: start: 201111
  3. PIRFENIDONE. [Suspect]
     Active Substance: PIRFENIDONE
     Indication: INTERSTITIAL LUNG DISEASE
     Dosage: (267MG X 3), ONGOING
     Route: 048
     Dates: start: 20171120, end: 20210714
  4. ACTONEL COMBI D [Concomitant]
     Active Substance: CALCIUM CARBONATE\CHOLECALCIFEROL\RISEDRONATE SODIUM
     Dosage: ON SUNDAY
     Route: 048
     Dates: start: 2017
  5. PREDNISOLONE. [Concomitant]
     Active Substance: PREDNISOLONE
     Indication: INTERSTITIAL LUNG DISEASE
     Route: 048
     Dates: start: 2012
  6. MYCOPHENOLATE [Concomitant]
     Active Substance: MYCOPHENOLIC ACID
  7. COLCHICINE. [Concomitant]
     Active Substance: COLCHICINE
     Indication: GOUT
     Route: 048
  8. BACTRIM DS [Concomitant]
     Active Substance: SULFAMETHOXAZOLE\TRIMETHOPRIM
     Dosage: 1/2 TAB MWF
  9. FELODIPINE. [Concomitant]
     Active Substance: FELODIPINE
     Indication: HYPERTENSION
     Route: 048
     Dates: start: 20180522

REACTIONS (26)
  - Tendon disorder [Recovered/Resolved]
  - Weight decreased [Not Recovered/Not Resolved]
  - Myalgia [Not Recovered/Not Resolved]
  - Nausea [Not Recovered/Not Resolved]
  - Muscle atrophy [Not Recovered/Not Resolved]
  - Atrial flutter [Unknown]
  - Palpitations [Unknown]
  - Hepatic failure [Fatal]
  - Dysphagia [Unknown]
  - Clostridium difficile colitis [Unknown]
  - Diarrhoea [Unknown]
  - Lower respiratory tract infection [Recovered/Resolved]
  - Pleural effusion [Unknown]
  - Hypotension [Unknown]
  - Dizziness [Unknown]
  - Peripheral swelling [Unknown]
  - Dry mouth [Not Recovered/Not Resolved]
  - Pulmonary embolism [Unknown]
  - Atrial fibrillation [Unknown]
  - Pneumonia [Recovered/Resolved]
  - Cough [Not Recovered/Not Resolved]
  - Deep vein thrombosis [Unknown]
  - Haemodynamic instability [Unknown]
  - Renal failure [Fatal]
  - Joint swelling [Unknown]
  - Vomiting [Unknown]

NARRATIVE: CASE EVENT DATE: 20191004
